FAERS Safety Report 10028041 (Version 1)
Quarter: 2014Q1

REPORT INFORMATION
  Report Type: Spontaneous
  Country: GB (occurrence: None)
  Receive Date: 20140318
  Receipt Date: 20140318
  Transmission Date: 20141002
  Serious: Yes (Hospitalization)
  Sender: FDA-Public Use
  Company Number: 2234650

PATIENT
  Age: 58 Year
  Sex: Male
  Weight: 78.2 kg

DRUGS (9)
  1. EPIRUBICIN HYDROCHLORIDE [Suspect]
     Indication: GASTRIC CANCER
     Route: 042
     Dates: start: 20120914
  2. CISPLATIN [Suspect]
     Indication: GASTRIC CANCER
     Route: 042
     Dates: start: 20120914
  3. BEVACIZUMAB [Suspect]
     Indication: GASTRIC CANCER
     Route: 042
     Dates: start: 20120914
  4. CAPECITABINE [Suspect]
     Indication: GASTRIC CANCER
     Route: 048
     Dates: start: 20120914
  5. CITALOPRAM [Concomitant]
  6. LISINOPRIL [Concomitant]
  7. OMEPRAZOLE [Concomitant]
  8. PROCHLORPERAZINE [Concomitant]
  9. THIAMIN [Concomitant]

REACTIONS (9)
  - Haematemesis [None]
  - Neutrophil count decreased [None]
  - Vertigo [None]
  - Infection [None]
  - Nausea [None]
  - Vomiting [None]
  - Diarrhoea [None]
  - Malaise [None]
  - Pancytopenia [None]
